FAERS Safety Report 9877653 (Version 2)
Quarter: 2014Q1

REPORT INFORMATION
  Report Type: Other
  Country: US (occurrence: US)
  Receive Date: 20140206
  Receipt Date: 20140206
  Transmission Date: 20141002
  Serious: No
  Sender: FDA-Public Use
  Company Number: US-ACORDA-ACO_38786_2013

PATIENT
  Sex: Male
  Weight: 86.17 kg

DRUGS (2)
  1. AMPYRA [Suspect]
     Indication: GAIT DISTURBANCE
     Dosage: 10 MG, BID
     Route: 065
     Dates: start: 2010
  2. AMPYRA [Suspect]
     Dosage: 10 MG, BID
     Route: 048
     Dates: start: 201308, end: 201309

REACTIONS (5)
  - Expired drug administered [Unknown]
  - Therapeutic response unexpected [Unknown]
  - Gait disturbance [Unknown]
  - Multiple sclerosis [Unknown]
  - Drug ineffective [Unknown]
